FAERS Safety Report 7268256-8 (Version None)
Quarter: 2011Q1

REPORT INFORMATION
  Report Type: 
  Country: None (occurrence: None)
  Receive Date: 20110201
  Receipt Date: 20101202
  Transmission Date: 20110831
  Serious: No
  Sender: FDA-Public Use
  Company Number: US-BAYER-2010-003484

PATIENT
  Sex: Male
  Weight: 68 kg

DRUGS (4)
  1. ALEVE (CAPLET) [Suspect]
     Indication: ANALGESIC THERAPY
     Dosage: DAILY DOSE 1 DF
     Route: 048
     Dates: start: 20101201
  2. ACTONEL [Concomitant]
  3. WALGREENS NON-DROWSY DAYTIME [Concomitant]
  4. URSODIOL [Concomitant]

REACTIONS (1)
  - FAECES DISCOLOURED [None]
